FAERS Safety Report 8976778 (Version 1)
Quarter: 2012Q4

REPORT INFORMATION
  Report Type: 
  Country: US (occurrence: US)
  Receive Date: 20121220
  Receipt Date: 20121220
  Transmission Date: 20130627
  Serious: Yes (Other)
  Sender: FDA-Public Use
  Company Number: US-BAYER-2012-132427

PATIENT
  Sex: Female
  Weight: 46.26 kg

DRUGS (4)
  1. ALEVE CAPLET/TABLET,MIDOL EXTENDED RELIEF CAPLET [Suspect]
     Indication: MUSCLE PAIN
     Route: 048
  2. BAYER ASPIRIN REGIMEN ADULT LOW STRENGTH [Concomitant]
  3. DORZOLAMIDE [Concomitant]
  4. VITAMINS [Concomitant]

REACTIONS (6)
  - Thrombosis [None]
  - Muscle spasms [None]
  - Muscle spasms [Recovered/Resolved]
  - Vision blurred [Not Recovered/Not Resolved]
  - Vision blurred [Not Recovered/Not Resolved]
  - Incorrect drug administration duration [None]
